FAERS Safety Report 16962235 (Version 2)
Quarter: 2020Q1

REPORT INFORMATION
  Report Type: Spontaneous
  Country: DE (occurrence: DE)
  Receive Date: 20191025
  Receipt Date: 20200209
  Transmission Date: 20200409
  Serious: Yes (Other)
  Sender: FDA-Public Use
  Company Number: DE-SA-2019SA296142

PATIENT
  Sex: Female

DRUGS (1)
  1. AUBAGIO [Suspect]
     Active Substance: TERIFLUNOMIDE
     Indication: MULTIPLE SCLEROSIS
     Dosage: UNK UNK, UNK

REACTIONS (5)
  - Visual impairment [Unknown]
  - Alopecia [Unknown]
  - Monocyte count increased [Unknown]
  - Blood bilirubin increased [Unknown]
  - Sensory disturbance [Unknown]
